FAERS Safety Report 7584479-2 (Version None)
Quarter: 2011Q2

REPORT INFORMATION
  Report Type: 
  Country: None (occurrence: None)
  Receive Date: 20110630
  Receipt Date: 20110622
  Transmission Date: 20111010
  Serious: Yes (Other)
  Sender: FDA-Public Use
  Company Number: GB-ALLERGAN-1015828US

PATIENT
  Age: 6 Year
  Sex: Female

DRUGS (1)
  1. LUMIGAN [Suspect]
     Indication: DEVELOPMENTAL GLAUCOMA
     Dosage: UNK

REACTIONS (3)
  - VISUAL ACUITY REDUCED [None]
  - RETINAL DETACHMENT [None]
  - CHOROIDAL EFFUSION [None]
